FAERS Safety Report 26212477 (Version 1)
Quarter: 2025Q4

REPORT INFORMATION
  Report Type: Spontaneous
  Country: US (occurrence: US)
  Receive Date: 20251230
  Receipt Date: 20251230
  Transmission Date: 20260118
  Serious: Yes (Other)
  Sender: SANOFI AVENTIS
  Company Number: US-SA-2025SA385854

PATIENT
  Sex: Female
  Weight: 68.18 kg

DRUGS (14)
  1. DUPIXENT [Suspect]
     Active Substance: DUPILUMAB
     Indication: Illness
     Dosage: 300 MG, QOW
     Route: 058
  2. DUPIXENT [Suspect]
     Active Substance: DUPILUMAB
     Indication: Dermatitis atopic
  3. DUPIXENT [Suspect]
     Active Substance: DUPILUMAB
     Indication: Rheumatoid arthritis
  4. RINVOQ [Concomitant]
     Active Substance: UPADACITINIB
     Dosage: UNK
  5. FISH OIL [Concomitant]
     Active Substance: FISH OIL
  6. Citracal + D3 [Concomitant]
  7. CHONDROITIN SULFATE A\GLUCOSAMINE [Concomitant]
     Active Substance: CHONDROITIN SULFATE A\GLUCOSAMINE
  8. LYSINE [Concomitant]
     Active Substance: LYSINE
  9. VITAMINS [Concomitant]
     Active Substance: VITAMINS
  10. CLOBETASOL [Concomitant]
     Active Substance: CLOBETASOL
  11. PROGESTERONE [Concomitant]
     Active Substance: PROGESTERONE
  12. ESTRADIOL [Concomitant]
     Active Substance: ESTRADIOL
  13. ESTRADIOL [Concomitant]
     Active Substance: ESTRADIOL
  14. CELEXA [Concomitant]
     Active Substance: CITALOPRAM HYDROBROMIDE

REACTIONS (3)
  - Thrombosis [Unknown]
  - Arterial disorder [Unknown]
  - Product use in unapproved indication [Unknown]
